FAERS Safety Report 9470491 (Version 1)
Quarter: 2013Q3

REPORT INFORMATION
  Report Type: Spontaneous
  Country: US (occurrence: None)
  Receive Date: 20130820
  Receipt Date: 20130820
  Transmission Date: 20140515
  Serious: Yes (Other)
  Sender: FDA-Public Use
  Company Number: None

PATIENT
  Age: 62 Year
  Sex: Male
  Weight: 79.38 kg

DRUGS (1)
  1. LISINOPRIL [Suspect]
     Indication: MYOCARDIAL INFARCTION
     Dosage: 6 MONTHS
     Route: 048

REACTIONS (4)
  - Syncope [None]
  - Contusion [None]
  - Laceration [None]
  - Skeletal injury [None]
